FAERS Safety Report 14935107 (Version 4)
Quarter: 2018Q3

REPORT INFORMATION
  Report Type: Report from Study
  Country: BE (occurrence: BE)
  Receive Date: 20180524
  Receipt Date: 20180912
  Transmission Date: 20181010
  Serious: Yes (Hospitalization)
  Sender: FDA-Public Use
  Company Number: BE-AMGEN-BELNI2018069965

PATIENT
  Age: 70 Year
  Sex: Female
  Weight: 70 kg

DRUGS (17)
  1. CARFILZOMIB [Suspect]
     Active Substance: CARFILZOMIB
     Dosage: 95.76 MG, UNK
     Route: 042
  2. XARELTO [Concomitant]
     Active Substance: RIVAROXABAN
     Dosage: 20 MG, UNK
     Dates: start: 2017
  3. LITICAN [Concomitant]
     Active Substance: ALIZAPRIDE HYDROCHLORIDE
     Dosage: 50 MG, UNK
     Dates: start: 20170116
  4. LENALIDOMIDE [Suspect]
     Active Substance: LENALIDOMIDE
     Indication: PLASMA CELL MYELOMA
     Dosage: 5?10 MG, UNK
     Route: 065
     Dates: start: 20170116, end: 20180314
  5. CARFILZOMIB [Suspect]
     Active Substance: CARFILZOMIB
     Indication: PLASMA CELL MYELOMA
     Dosage: 20 MG/M2, UNK
     Route: 042
     Dates: start: 20170116
  6. DAFALGAN [Concomitant]
     Active Substance: ACETAMINOPHEN
     Dosage: 1 G, UNK
     Dates: start: 2017
  7. DUOVENT [Concomitant]
     Active Substance: FENOTEROL HYDROBROMIDE
     Dosage: 4 ML, UNK
     Dates: start: 20170717
  8. ACICLOVIR [Concomitant]
     Active Substance: ACYCLOVIR
     Dosage: 0.5 UNK, UNK
     Dates: start: 20170116
  9. PRIMPERAN [Concomitant]
     Active Substance: METOCLOPRAMIDE HYDROCHLORIDE
     Dosage: 10 MG, UNK
     Dates: start: 20180103
  10. ZOFRAN [Concomitant]
     Active Substance: ONDANSETRON HYDROCHLORIDE
     Dosage: 1 UNK, UNK AND 8 MG, UNK
     Dates: start: 20171218, end: 20171220
  11. MORPHIN [Concomitant]
     Active Substance: MORPHINE
     Dosage: 1 UNK, UNK
     Dates: start: 20180302
  12. PANTOMED [Concomitant]
     Dosage: 20 MG, UNK
     Dates: start: 2015
  13. FOLAVIT [Concomitant]
     Active Substance: FOLIC ACID
     Dosage: 4 MG, UNK
     Dates: start: 2017
  14. EMCONCOR [Concomitant]
     Active Substance: BISOPROLOL FUMARATE
     Dosage: 2.5 MG, UNK
     Dates: start: 201512
  15. PRIVIGEN [Concomitant]
     Active Substance: HUMAN IMMUNOGLOBULIN G
     Dosage: 35 MUG, UNK
     Dates: start: 20150226
  16. URICRAN [Concomitant]
     Dosage: 1 UNK, UNK
     Dates: start: 20171227, end: 20171231
  17. DEXAMETHASONE. [Concomitant]
     Active Substance: DEXAMETHASONE
     Indication: PLASMA CELL MYELOMA
     Dosage: UNK MG, UNK
     Dates: start: 20170116

REACTIONS (1)
  - Gastrointestinal disorder [Recovered/Resolved]

NARRATIVE: CASE EVENT DATE: 20180314
